FAERS Safety Report 7095435-5 (Version None)
Quarter: 2010Q4

REPORT INFORMATION
  Report Type: 
  Country: None (occurrence: None)
  Receive Date: 20101102
  Receipt Date: 20101026
  Transmission Date: 20110411
  Serious: Yes (Death)
  Sender: FDA-Public Use
  Company Number: 2010-3665

PATIENT
  Age: 60 Year
  Sex: Female

DRUGS (3)
  1. SOMATULINE AUTOGEL 60 MG (SOMATULINE SR (LANREOTIDE) (LANREOTIDE ACETA [Suspect]
     Indication: CARCINOID TUMOUR
     Dosage: 60 MG (60 MG)
     Dates: end: 20101015
  2. DEKORT (DEXAMETHASONE) [Concomitant]
  3. PHENYTOIN SODIUM CAP [Concomitant]

REACTIONS (1)
  - DEATH [None]
